FAERS Safety Report 4615935-4 (Version None)
Quarter: 2005Q1

REPORT INFORMATION
  Report Type: 
  Country: None (occurrence: None)
  Receive Date: 20050318
  Receipt Date: 20050307
  Transmission Date: 20050727
  Serious: Yes (Hospitalization)
  Sender: FDA-Public Use
  Company Number: 2005032252

PATIENT
  Age: 55 Year
  Sex: Female

DRUGS (4)
  1. CAMPTOSAR [Suspect]
     Indication: RECTAL CANCER
     Dosage: INTRAVENOUS
     Route: 042
     Dates: end: 20050112
  2. FLUOROURACIL [Suspect]
     Indication: RECTAL CANCER
     Dosage: INTRAVENOUS
     Route: 042
     Dates: end: 20050112
  3. CETUXIMAB (CETUXIMAB) [Suspect]
     Indication: RECTAL CANCER
     Dosage: 1 DOSE FORM (WEEKLY), INTRAVENOUS
     Route: 042
     Dates: start: 20050110, end: 20050117
  4. CALCIUM LEVOFOLINATE (CALCIUM LEVOFOLINATE) [Suspect]
     Indication: RECTAL CANCER
     Dosage: INTRAVENOUS
     Route: 042
     Dates: end: 20050112

REACTIONS (1)
  - FEMALE GENITAL-DIGESTIVE TRACT FISTULA [None]
